FAERS Safety Report 10258948 (Version 2)
Quarter: 2014Q2

REPORT INFORMATION
  Report Type: Spontaneous
  Country: US (occurrence: US)
  Receive Date: 20140625
  Receipt Date: 20140625
  Transmission Date: 20141212
  Serious: No
  Sender: FDA-Public Use
  Company Number: US-ASTELLAS-2013US008899

PATIENT
  Age: 89 Year
  Sex: Female
  Weight: 50 kg

DRUGS (5)
  1. VESICARE [Suspect]
     Indication: URINARY INCONTINENCE
     Route: 048
     Dates: start: 20100801
  2. VESICARE [Suspect]
     Route: 048
     Dates: start: 201303
  3. VESICARE [Suspect]
     Route: 048
     Dates: start: 20130701
  4. VESICARE [Suspect]
     Dosage: 5MG AND 10MG, ALTERNATELY QD
     Route: 048
     Dates: end: 201308
  5. VESICARE [Suspect]
     Dosage: 5MG AND 10MG ALTERNATELY QOD
     Route: 048

REACTIONS (4)
  - Drug ineffective [Unknown]
  - Inappropriate schedule of drug administration [Unknown]
  - Nocturia [Unknown]
  - Constipation [Recovered/Resolved]
